FAERS Safety Report 9648422 (Version 1)
Quarter: 2013Q4

REPORT INFORMATION
  Report Type: Spontaneous
  Country: US (occurrence: US)
  Receive Date: 20131028
  Receipt Date: 20131028
  Transmission Date: 20140711
  Serious: No
  Sender: FDA-Public Use
  Company Number: US-TEVA-440150USA

PATIENT
  Age: 6 Decade
  Sex: Female

DRUGS (2)
  1. PROAIR HFA [Suspect]
  2. SYMBICORT [Concomitant]

REACTIONS (1)
  - Arthritis [Not Recovered/Not Resolved]
